FAERS Safety Report 7974557-8 (Version None)
Quarter: 2011Q4

REPORT INFORMATION
  Report Type: 
  Country: None (occurrence: None)
  Receive Date: 20111213
  Receipt Date: 20111202
  Transmission Date: 20120403
  Serious: Yes (Other)
  Sender: FDA-Public Use
  Company Number: US-JNJFOC-20110801276

PATIENT
  Sex: Female
  Weight: 78.93 kg

DRUGS (7)
  1. REMICADE [Suspect]
     Indication: CROHN'S DISEASE
     Route: 042
     Dates: start: 20030211
  2. REMICADE [Suspect]
     Dosage: 8 INFLIXIMAB INFUSION PRIOR TO TREAT REGISTRATION
     Route: 042
  3. REMICADE [Suspect]
     Dosage: 58 INFUSIONS BETWEEN 20-APR-2005 AND 09-MAY-2011
     Route: 042
     Dates: start: 20050420
  4. ANTIDEPRESSANTS [Concomitant]
  5. REMICADE [Suspect]
     Dosage: 17 INFUSIONS
     Route: 042
     Dates: start: 20030509, end: 20050304
  6. AZATHIOPRINE [Suspect]
     Indication: PRODUCT USED FOR UNKNOWN INDICATION
  7. REMICADE [Suspect]
     Dosage: TOTAL OF 78 INFLIXIMAB INFUSION SINCE TREAT REGISTRATION
     Route: 042
     Dates: start: 20110613

REACTIONS (1)
  - SQUAMOUS CELL CARCINOMA OF SKIN [None]
